FAERS Safety Report 9469333 (Version 2)
Quarter: 2013Q3

REPORT INFORMATION
  Report Type: Spontaneous
  Country: US (occurrence: None)
  Receive Date: 20130815
  Receipt Date: 20130821
  Transmission Date: 20140515
  Serious: Yes (Other)
  Sender: FDA-Public Use
  Company Number: USA/USA/13/0033995

PATIENT
  Age: 15 Year
  Sex: Female

DRUGS (3)
  1. ZENATANE [Suspect]
     Indication: PRODUCT USED FOR UNKNOWN INDICATION
     Dates: end: 20130806
  2. CLARITIN (GLICLAZIDE) [Concomitant]
  3. ADVIL (MEFENAMIC ACID) [Concomitant]

REACTIONS (2)
  - Aggression [None]
  - Anger [None]
